FAERS Safety Report 22016315 (Version 1)
Quarter: 2023Q1

REPORT INFORMATION
  Report Type: Other
  Country: CA (occurrence: CA)
  Receive Date: 20230221
  Receipt Date: 20230221
  Transmission Date: 20230418
  Serious: Yes (Other)
  Sender: FDA-Public Use
  Company Number: CA-APOTEX-2023AP003561

PATIENT
  Age: 63 Year
  Sex: Female

DRUGS (2)
  1. FULVESTRANT [Suspect]
     Active Substance: FULVESTRANT
     Indication: Product used for unknown indication
     Dosage: UNK
     Route: 030
  2. ALPELISIB [Suspect]
     Active Substance: ALPELISIB
     Indication: Breast cancer metastatic
     Dosage: 300 MILLIGRAM, QD
     Route: 048

REACTIONS (6)
  - Malignant neoplasm progression [Unknown]
  - Breast cancer metastatic [Unknown]
  - Muscle twitching [Unknown]
  - Diarrhoea [Unknown]
  - Rash [Unknown]
  - Arthralgia [Unknown]
